FAERS Safety Report 22971973 (Version 9)
Quarter: 2023Q4

REPORT INFORMATION
  Report Type: Report from Study
  Country: AT (occurrence: AT)
  Receive Date: 20230922
  Receipt Date: 20231023
  Transmission Date: 20240110
  Serious: Yes (Hospitalization, Other)
  Sender: FDA-Public Use
  Company Number: AT-PFM-2023-05239

PATIENT
  Sex: Male
  Weight: 61 kg

DRUGS (15)
  1. BRAFTOVI [Suspect]
     Active Substance: ENCORAFENIB
     Indication: Colorectal cancer
     Dosage: 300 MG, DAILY
     Route: 048
     Dates: start: 20230607, end: 20230614
  2. BRAFTOVI [Suspect]
     Active Substance: ENCORAFENIB
     Dosage: 225 MG, DAILY
     Route: 048
     Dates: start: 20230615, end: 20230719
  3. BRAFTOVI [Suspect]
     Active Substance: ENCORAFENIB
     Dosage: 225 MG, DAILY
     Route: 048
     Dates: start: 20230720
  4. CETUXIMAB [Suspect]
     Active Substance: CETUXIMAB
     Indication: Colorectal cancer
     Dosage: 200 MG/M2, WEEKLY
     Route: 042
     Dates: start: 20230531, end: 20230818
  5. CETUXIMAB [Suspect]
     Active Substance: CETUXIMAB
     Dosage: UNK
     Route: 065
     Dates: start: 20230920
  6. EDOXABAN TOSYLATE [Concomitant]
     Active Substance: EDOXABAN TOSYLATE
     Indication: Prophylaxis
     Dosage: 60 MG, DAILY
     Route: 048
     Dates: start: 202202
  7. NOVALGIN (METAMIZOLE SODIUM) [Concomitant]
     Active Substance: METAMIZOLE SODIUM
     Indication: Prophylaxis
     Dosage: 500 MG, PRN (AS NEEDED)
     Route: 048
     Dates: start: 202202
  8. METOCLOPRAMIDE HYDROCHLORIDE [Concomitant]
     Active Substance: METOCLOPRAMIDE HYDROCHLORIDE
     Indication: Prophylaxis
     Dosage: 10.54 MG, PRN (AS NEEDED)
     Route: 048
     Dates: start: 20220623
  9. LACTULOSE [Concomitant]
     Active Substance: LACTULOSE
     Indication: Prophylaxis
     Dosage: 15 ML, PRN (AS NEEDED)
     Route: 048
     Dates: start: 20220623
  10. SCHERIPROCT [CINCHOCAINE HYDROCHLORIDE;PREDNISOLONE CAPROATE] [Concomitant]
     Indication: Anal fissure
     Dosage: 1 (UNIT NOT PROVIDED), PRN (AS NEEDED)
     Route: 054
     Dates: start: 20220623
  11. DIPRODERM CR [Concomitant]
     Indication: Prophylaxis
     Dosage: 1 ML, PRN (AS NEEDED)
     Route: 061
     Dates: start: 20230531
  12. PANTOPRAZOLE SODIUM [Concomitant]
     Active Substance: PANTOPRAZOLE SODIUM
     Indication: Prophylaxis
     Dosage: 40 MG, PRN (AS NEEDED)
     Route: 048
     Dates: start: 20230531
  13. MINOSTAD [Concomitant]
     Indication: Prophylaxis
     Dosage: 50 MG, DAILY
     Route: 048
     Dates: start: 20230531
  14. DILTIAZEM HYDROCHLORIDE [Concomitant]
     Active Substance: DILTIAZEM HYDROCHLORIDE
     Indication: Anal fissure
     Dosage: 1 ML, DAILY
     Route: 054
     Dates: start: 20230726
  15. LASIX [Concomitant]
     Active Substance: FUROSEMIDE
     Indication: Prophylaxis
     Dosage: 40 MG, DAILY
     Route: 048
     Dates: start: 20230915, end: 20230917

REACTIONS (8)
  - Blood bilirubin increased [Recovered/Resolved]
  - Gamma-glutamyltransferase increased [Recovered/Resolved]
  - Aspartate aminotransferase increased [Not Recovered/Not Resolved]
  - Alanine aminotransferase increased [Recovered/Resolved]
  - Alanine aminotransferase increased [Recovered/Resolved]
  - Aspartate aminotransferase increased [Recovered/Resolved]
  - Blood bilirubin increased [Not Recovered/Not Resolved]
  - Blood alkaline phosphatase increased [Recovered/Resolved]

NARRATIVE: CASE EVENT DATE: 20230726
